FAERS Safety Report 7971008-4 (Version None)
Quarter: 2011Q4

REPORT INFORMATION
  Report Type: 
  Country: None (occurrence: None)
  Receive Date: 20111212
  Receipt Date: 20111201
  Transmission Date: 20120403
  Serious: Yes (Other)
  Sender: FDA-Public Use
  Company Number: US-PERRIGO-11US010581

PATIENT
  Sex: Female
  Weight: 68.027 kg

DRUGS (1)
  1. IBUPROFEN [Suspect]
     Indication: ARTHRITIS
     Dosage: MAXIMUM DOSE PER LABEL ORAL USE DAILY
     Route: 048
     Dates: start: 19920101, end: 20040101

REACTIONS (3)
  - DIVERTICULAR PERFORATION [None]
  - RECTAL HAEMORRHAGE [None]
  - INCORRECT DRUG ADMINISTRATION DURATION [None]
